FAERS Safety Report 3391463 (Version 2)
Quarter: 2020Q3

REPORT INFORMATION
  Report Type: Spontaneous
  Country: US (occurrence: None)
  Receive Date: 19991123
  Receipt Date: 19991126
  Transmission Date: 20201104
  Serious: Yes (Death)
  Sender: FDA-Public Use
  Company Number: 9945983

PATIENT
  Age: 83 Year
  Sex: Female
  Weight: 73.09 kg

DRUGS (11)
  1. INSULIN NOS [Concomitant]
     Active Substance: INSULIN NOS
  2. HALOPERIDOL. [Concomitant]
     Active Substance: HALOPERIDOL
  3. DROPERIDOL. [Concomitant]
     Active Substance: DROPERIDOL
  4. RANITIDINE. [Concomitant]
     Active Substance: RANITIDINE
  5. MIDAZOLAM HYDROCHLORIDE. [Concomitant]
     Active Substance: MIDAZOLAM HYDROCHLORIDE
  6. TPN ELECTROLYTES [Concomitant]
     Active Substance: CALCIUM CHLORIDE\MAGNESIUM CHLORIDE\POTASSIUM CHLORIDE\SODIUM ACETATE ANHYDROUS\SODIUM CHLORIDE
  7. PHYTONADIONE. [Concomitant]
     Active Substance: PHYTONADIONE
  8. ALATROFLOXACIN MESYLATE. [Suspect]
     Active Substance: ALATROFLOXACIN MESYLATE
     Indication: ABDOMINAL ABSCESS
     Dosage: 200.00 MG TOTAL:DAILY:INTRAVENOUS
     Route: 042
     Dates: start: 19990529, end: 19990609
  9. FAMOTIDINE. [Concomitant]
     Active Substance: FAMOTIDINE
  10. ALATROFLOXACIN MESYLATE. [Suspect]
     Active Substance: ALATROFLOXACIN MESYLATE
     Indication: GASTRIC ULCER PERFORATION
     Dosage: 200.00 MG TOTAL:DAILY:INTRAVENOUS
     Route: 042
     Dates: start: 19990529, end: 19990609
  11. HEPARIN [Concomitant]
     Active Substance: HEPARIN SODIUM

REACTIONS (5)
  - Jaundice [None]
  - Blood bilirubin increased [None]
  - Abdominal abscess [None]
  - Sepsis [None]
  - Liver function test abnormal [None]

NARRATIVE: CASE EVENT DATE: 19990605
